FAERS Safety Report 9660256 (Version 2)
Quarter: 2013Q4

REPORT INFORMATION
  Report Type: Spontaneous
  Country: US (occurrence: US)
  Receive Date: 20131031
  Receipt Date: 20131031
  Transmission Date: 20140711
  Serious: No
  Sender: FDA-Public Use
  Company Number: US-PURDUE-USA-2010-0052935

PATIENT
  Sex: Male

DRUGS (2)
  1. OXYCONTIN TABLETS [Suspect]
     Indication: BACK PAIN
     Dosage: 60 MG, TID
     Dates: start: 201009
  2. OXYCONTIN TABLETS [Suspect]
     Indication: RADICULOPATHY
     Dosage: 40 MG, BID
     Dates: start: 201009

REACTIONS (3)
  - Inadequate analgesia [Unknown]
  - Headache [Unknown]
  - Disturbance in attention [Unknown]
